FAERS Safety Report 6456073-8 (Version None)
Quarter: 2009Q4

REPORT INFORMATION
  Report Type: 
  Country: None (occurrence: None)
  Receive Date: 20091125
  Receipt Date: 20091118
  Transmission Date: 20100525
  Serious: Yes (Hospitalization, Other)
  Sender: FDA-Public Use
  Company Number: US-JNJFOC-20061102417

PATIENT
  Sex: Female

DRUGS (3)
  1. RISPERDAL [Suspect]
     Indication: DEPRESSION
     Route: 065
  2. SEROQUEL [Suspect]
     Indication: DEPRESSION
     Route: 065
  3. PHENERGAN HCL [Suspect]
     Indication: DRUG USE FOR UNKNOWN INDICATION
     Route: 065

REACTIONS (4)
  - ELECTROCARDIOGRAM QT PROLONGED [None]
  - HYPOTHYROIDISM [None]
  - PANCREATITIS [None]
  - TYPE 2 DIABETES MELLITUS [None]
